FAERS Safety Report 8936037 (Version 1)
Quarter: 2012Q4

REPORT INFORMATION
  Report Type: Spontaneous
  Country: US (occurrence: None)
  Receive Date: 20121128
  Receipt Date: 20121128
  Transmission Date: 20130627
  Serious: Yes (Hospitalization, Other)
  Sender: FDA-Public Use
  Company Number: None

PATIENT
  Age: 82 Year
  Sex: Male
  Weight: 102.9 kg

DRUGS (1)
  1. CHOLECALCIFEROL [Suspect]
     Indication: OSTEOPENIA
     Route: 048
     Dates: start: 20120103, end: 20121126

REACTIONS (2)
  - Renal failure acute [None]
  - Hypercalcaemia [None]
